FAERS Safety Report 8991885 (Version 3)
Quarter: 2013Q4

REPORT INFORMATION
  Report Type: Report from Study
  Country: CA (occurrence: CA)
  Receive Date: 20121231
  Receipt Date: 20131227
  Transmission Date: 20140711
  Serious: Yes (Other)
  Sender: FDA-Public Use
  Company Number: CA-ROCHE-1171627

PATIENT
  Age: 55 Year
  Sex: Female
  Weight: 122.6 kg

DRUGS (7)
  1. OMALIZUMAB [Suspect]
     Indication: ASTHMA
     Dosage: 300 MG, Q4W
     Route: 058
     Dates: start: 20070607
  2. OMALIZUMAB [Suspect]
     Dosage: UNK
     Route: 058
     Dates: start: 20110411
  3. OMALIZUMAB [Suspect]
     Route: 058
     Dates: start: 20120213
  4. OMALIZUMAB [Suspect]
     Route: 058
     Dates: start: 20120312
  5. OMALIZUMAB [Suspect]
     Route: 058
     Dates: start: 20070801
  6. CYCLOBENZAPRINE [Suspect]
     Indication: PRODUCT USED FOR UNKNOWN INDICATION
     Route: 065
  7. ALVESCO [Concomitant]

REACTIONS (27)
  - Blood pressure decreased [Recovering/Resolving]
  - Hepatic cyst [Unknown]
  - Osteomyelitis [Unknown]
  - Loss of consciousness [Recovered/Resolved]
  - Infection [Recovering/Resolving]
  - Asthma [Unknown]
  - Productive cough [Unknown]
  - Pulmonary congestion [Unknown]
  - Oropharyngeal pain [Unknown]
  - Dyspnoea [Unknown]
  - Toothache [Unknown]
  - Pain [Unknown]
  - Influenza [Unknown]
  - Injection site pruritus [Unknown]
  - Dizziness [Unknown]
  - Throat irritation [Unknown]
  - Asthenia [Unknown]
  - Malaise [Unknown]
  - Respiratory tract irritation [Unknown]
  - Dyspnoea [Unknown]
  - Sputum increased [Unknown]
  - Secretion discharge [Unknown]
  - Nasal congestion [Unknown]
  - Sputum discoloured [Unknown]
  - Sinusitis [Recovering/Resolving]
  - Ear infection [Recovering/Resolving]
  - Bronchitis [Recovering/Resolving]
